FAERS Safety Report 22661850 (Version 1)
Quarter: 2023Q2

REPORT INFORMATION
  Report Type: Spontaneous
  Country: GB (occurrence: GB)
  Receive Date: 20230630
  Receipt Date: 20230630
  Transmission Date: 20230721
  Serious: Yes (Other)
  Sender: FDA-Public Use
  Company Number: GB-MHRA-MED-202306281754470040-WBKLC

PATIENT
  Age: 72 Year
  Sex: Female

DRUGS (1)
  1. ALOGLIPTIN [Suspect]
     Active Substance: ALOGLIPTIN
     Indication: Diabetes mellitus
     Dosage: 25 MILLIGRAM, QD
     Route: 065

REACTIONS (1)
  - Suicidal ideation [Recovered/Resolved]
